FAERS Safety Report 5286752-X (Version None)
Quarter: 2007Q1

REPORT INFORMATION
  Report Type: 
  Country: None (occurrence: None)
  Receive Date: 20070329
  Receipt Date: 20070319
  Transmission Date: 20070707
  Serious: Yes (Hospitalization)
  Sender: FDA-Public Use
  Company Number: 2007-156017-NL

PATIENT
  Age: 84 Year
  Sex: Female

DRUGS (10)
  1. MIRTAZAPINE [Suspect]
     Dosage: 15 MG/30 MG/45 MG ORAL
     Route: 048
     Dates: start: 20061116, end: 20061119
  2. MIRTAZAPINE [Suspect]
     Dosage: 15 MG/30 MG/45 MG ORAL
     Route: 048
     Dates: start: 20061120, end: 20061123
  3. MIRTAZAPINE [Suspect]
     Dosage: 15 MG/30 MG/45 MG ORAL
     Route: 048
     Dates: start: 20061124
  4. OLANZAPINE [Suspect]
     Dosage: 5 MG/7.5 MG/5 MG ORAL
     Route: 048
     Dates: start: 20061127, end: 20061128
  5. OLANZAPINE [Suspect]
     Dosage: 5 MG/7.5 MG/5 MG ORAL
     Route: 048
     Dates: start: 20061129, end: 20061214
  6. OLANZAPINE [Suspect]
     Dosage: 5 MG/7.5 MG/5 MG ORAL
     Route: 048
     Dates: start: 20061215, end: 20070111
  7. PIPAMPERONE [Suspect]
     Dosage: 40 MG ORAL
     Route: 048
     Dates: start: 20061214
  8. IRBESARTAN [Suspect]
     Dosage: 150 MG ORAL
     Route: 048
  9. CARVEDILOL [Suspect]
     Dosage: 6.25 MG ORAL
     Route: 048
  10. PANTOPRAZOLE SODIUM [Concomitant]

REACTIONS (4)
  - CAROTID ARTERY DISEASE [None]
  - CEREBRAL ISCHAEMIA [None]
  - CEREBROVASCULAR INSUFFICIENCY [None]
  - MACROANGIOPATHY [None]
